FAERS Safety Report 9896333 (Version 2)
Quarter: 2014Q1

REPORT INFORMATION
  Report Type: Spontaneous
  Country: US (occurrence: US)
  Receive Date: 20140213
  Receipt Date: 20140213
  Transmission Date: 20141002
  Serious: No
  Sender: FDA-Public Use
  Company Number: US-BRISTOL-MYERS SQUIBB COMPANY-19073246

PATIENT
  Age: 79 Year
  Sex: Female

DRUGS (9)
  1. ORENCIA [Suspect]
     Indication: RHEUMATOID ARTHRITIS
     Dosage: LAST INFUSION: 24JUN2013?STARTED: 05MAR2012
     Route: 042
     Dates: start: 2011
  2. REMICADE [Suspect]
  3. CYTOMEL [Concomitant]
  4. ALLOPURINOL [Concomitant]
  5. ASPIRIN [Concomitant]
  6. METOPROLOL [Concomitant]
  7. CILOSTAZOL [Concomitant]
  8. CRESTOR [Concomitant]
  9. EVISTA [Concomitant]

REACTIONS (1)
  - Wrong drug administered [Unknown]
